FAERS Safety Report 25151852 (Version 2)
Quarter: 2025Q2

REPORT INFORMATION
  Report Type: Spontaneous
  Country: GB (occurrence: GB)
  Receive Date: 20250402
  Receipt Date: 20250422
  Transmission Date: 20250716
  Serious: Yes (Hospitalization, Other)
  Sender: PFIZER
  Company Number: None

PATIENT
  Age: 25 Year
  Sex: Female

DRUGS (1)
  1. TRANEXAMIC ACID [Suspect]
     Active Substance: TRANEXAMIC ACID
     Indication: Vaginal haemorrhage
     Dates: start: 20250327

REACTIONS (6)
  - Cold sweat [Recovered/Resolved]
  - Hypotension [Unknown]
  - Hyperhidrosis [Unknown]
  - Illness [Unknown]
  - Pallor [Unknown]
  - Feeling hot [Unknown]

NARRATIVE: CASE EVENT DATE: 20250327
